FAERS Safety Report 7943401 (Version 6)
Quarter: 2013Q2

REPORT INFORMATION
  Report Type: Spontaneous
  Country: FR (occurrence: None)
  Receive Date: 20110428
  Receipt Date: 20130516
  Transmission Date: 20140414
  Serious: Yes (Other)
  Sender: FDA-Public Use
  Company Number: JPI-P-003411

PATIENT
  Age: 38 Year
  Sex: Male
  Weight: 94 kg

DRUGS (3)
  1. XYREM [Suspect]
     Indication: CATAPLEXY
     Dosage: 4.5 GM (2.25 GM, 2 IN 1 D), ORAL
     Route: 048
     Dates: start: 20080223, end: 20080522
  2. MODAFINIL [Concomitant]
  3. ESCITALOPRAM OXALATE [Concomitant]

REACTIONS (17)
  - INCONTINENCE [None]
  - CONFUSIONAL STATE [None]
  - HEADACHE [None]
  - DEPRESSION [None]
  - DIZZINESS [None]
  - PSYCHOMOTOR HYPERACTIVITY [None]
  - DISTURBANCE IN ATTENTION [None]
  - DECREASED APPETITE [None]
  - WEIGHT DECREASED [None]
  - DISORIENTATION [None]
  - SOMNAMBULISM [None]
  - Balance disorder [None]
  - INSOMNIA [None]
  - BULIMIA NERVOSA [None]
  - HERNIA [None]
  - Accidental exposure to product [None]
  - PRODUCT QUALITY ISSUE [None]
